FAERS Safety Report 13342069 (Version 1)
Quarter: 2017Q1

REPORT INFORMATION
  Report Type: Spontaneous
  Country: US (occurrence: US)
  Receive Date: 20170316
  Receipt Date: 20170316
  Transmission Date: 20170428
  Serious: No
  Sender: FDA-Public Use
  Company Number: US-ROCHE-1790907

PATIENT
  Age: 58 Year
  Sex: Female

DRUGS (1)
  1. ERIVEDGE [Suspect]
     Active Substance: VISMODEGIB
     Indication: BASAL CELL CARCINOMA
     Route: 048
     Dates: start: 20160405

REACTIONS (7)
  - Diarrhoea [Recovered/Resolved]
  - Headache [Unknown]
  - Recurrent cancer [Unknown]
  - Asthenia [Unknown]
  - Muscle spasms [Unknown]
  - Ageusia [Recovered/Resolved]
  - Dysgeusia [Recovered/Resolved]
